FAERS Safety Report 18197945 (Version 1)
Quarter: 2020Q3

REPORT INFORMATION
  Report Type: Spontaneous
  Country: DE (occurrence: DE)
  Receive Date: 20200826
  Receipt Date: 20200826
  Transmission Date: 20201104
  Serious: Yes (Hospitalization)
  Sender: FDA-Public Use
  Company Number: DE-TEVA-2020-DE-1819696

PATIENT
  Age: 80 Year
  Sex: Female

DRUGS (5)
  1. IBUPROFEN. [Suspect]
     Active Substance: IBUPROFEN
     Dosage: 600 MG, IF NECESSARY
     Route: 048
  2. ALISKIREN [Concomitant]
     Active Substance: ALISKIREN
     Dosage: 300 MILLIGRAM DAILY;  1?0?0?0
     Route: 048
  3. ALLOPURINOL. [Concomitant]
     Active Substance: ALLOPURINOL
     Dosage: 300 MILLIGRAM DAILY; 1?0?0?0
     Route: 048
  4. ETORICOXIB. [Suspect]
     Active Substance: ETORICOXIB
     Dosage: 30 MILLIGRAM DAILY; 1?0?0?0
     Route: 048
  5. GABAPENTIN. [Concomitant]
     Active Substance: GABAPENTIN
     Dosage: 100 MG, IF NECESSARY
     Route: 048

REACTIONS (9)
  - Dyspnoea [Recovering/Resolving]
  - Musculoskeletal pain [Recovering/Resolving]
  - Abdominal pain upper [Recovering/Resolving]
  - Pain [Recovering/Resolving]
  - Tachypnoea [Recovering/Resolving]
  - Pulmonary oedema [Recovering/Resolving]
  - Hypertension [Recovering/Resolving]
  - Electrocardiogram abnormal [Recovering/Resolving]
  - Pain in extremity [Recovering/Resolving]
